FAERS Safety Report 4567928-3 (Version None)
Quarter: 2005Q1

REPORT INFORMATION
  Report Type: 
  Country: None (occurrence: None)
  Receive Date: 20050202
  Receipt Date: 20040225
  Transmission Date: 20050727
  Serious: No
  Sender: FDA-Public Use
  Company Number: US-GLAXOSMITHKLINE-A0499826A

PATIENT
  Sex: Female

DRUGS (4)
  1. NAVELBINE [Suspect]
     Indication: BREAST CANCER
     Dosage: 1INJ WEEKLY
     Route: 042
     Dates: start: 20020901
  2. HERCEPTIN [Concomitant]
  3. PROCRIT [Concomitant]
  4. FOSAMAX [Concomitant]

REACTIONS (1)
  - LACRIMATION INCREASED [None]
